FAERS Safety Report 9420923 (Version 1)
Quarter: 2013Q3

REPORT INFORMATION
  Report Type: Spontaneous
  Country: US (occurrence: US)
  Receive Date: 20130725
  Receipt Date: 20130725
  Transmission Date: 20140515
  Serious: No
  Sender: FDA-Public Use
  Company Number: US-ABBOTT-13P-163-1114041-00

PATIENT
  Age: 59 Year
  Sex: Female
  Weight: 67.19 kg

DRUGS (3)
  1. SYNTHROID [Suspect]
     Indication: THYROID DISORDER
     Dates: start: 201202
  2. ADVAIR [Concomitant]
     Indication: ASTHMA
  3. ASPIRIN [Concomitant]
     Indication: ATRIAL FIBRILLATION

REACTIONS (5)
  - Alopecia [Recovered/Resolved]
  - Myalgia [Recovered/Resolved]
  - Alopecia [Not Recovered/Not Resolved]
  - Muscle spasms [Not Recovered/Not Resolved]
  - Weight loss poor [Not Recovered/Not Resolved]
